FAERS Safety Report 9886355 (Version 2)
Quarter: 2014Q1

REPORT INFORMATION
  Report Type: Spontaneous
  Country: CZ (occurrence: CZ)
  Receive Date: 20140210
  Receipt Date: 20140220
  Transmission Date: 20141002
  Serious: Yes (Life-Threatening, Hospitalization, Other)
  Sender: FDA-Public Use
  Company Number: CZ-TEVA-459124ISR

PATIENT
  Age: 39 Year
  Sex: Female

DRUGS (6)
  1. PLATIDIAM 10 [Suspect]
     Indication: CERVIX CARCINOMA
     Dosage: CONCENTRATE FOR SOLUTION FOR INFUSION
     Route: 041
     Dates: start: 20140104, end: 20140104
  2. PACLITAXEL KABI 6 MG/ML KONCENTR?T PRO P?PRAVU INFUZN?HO ROZTOKU [Suspect]
     Indication: CERVIX CARCINOMA
     Dosage: CONCENTRATE FOR SOLUTION FOR INFUSION
     Route: 041
     Dates: start: 20140104, end: 20140104
  3. KALIUM CHLORATUM L?IVA 7,5% [Concomitant]
     Indication: PREMEDICATION
     Route: 041
     Dates: start: 20140104, end: 20140104
  4. GRANISETRON TEVA 3 MG/3 ML [Concomitant]
     Indication: PREMEDICATION
     Dosage: CONCENTRATE FOR SOLUTION FOR INJECTION/INFUSION
     Route: 041
     Dates: start: 20140104, end: 20140104
  5. DEXAMED [Concomitant]
     Indication: PREMEDICATION
     Route: 041
     Dates: start: 20140104, end: 20140104
  6. RANITAL 50 MG/2 ML [Concomitant]
     Indication: PREMEDICATION
     Route: 041
     Dates: start: 20140104, end: 20140104

REACTIONS (2)
  - Pruritus generalised [Recovered/Resolved]
  - Erythema [Recovered/Resolved]
